FAERS Safety Report 8613619-9 (Version None)
Quarter: 2012Q3

REPORT INFORMATION
  Report Type: 
  Country: None (occurrence: None)
  Receive Date: 20120823
  Receipt Date: 20120809
  Transmission Date: 20120928
  Serious: Yes (Life-Threatening, Other)
  Sender: FDA-Public Use
  Company Number: FR-009507513-1208FRA005579

PATIENT

DRUGS (12)
  1. CRESTOR [Concomitant]
     Route: 048
  2. JANUMET [Suspect]
     Indication: TYPE 2 DIABETES MELLITUS
     Dosage: 100MG-2000
     Route: 048
     Dates: end: 20120716
  3. TRAMADOL HYDROCHLORIDE [Concomitant]
     Route: 048
  4. JANUMET [Suspect]
  5. KETOPROFEN [Suspect]
     Dosage: 100 MG, BID
     Route: 048
     Dates: start: 20120712, end: 20120714
  6. ASPIRIN [Concomitant]
     Route: 048
  7. ACETAMINOPHEN [Concomitant]
     Route: 048
  8. MORPHINE SULFATE [Concomitant]
     Route: 048
  9. KETOPROFEN [Suspect]
     Indication: SCIATICA
     Dosage: UNK
     Route: 042
     Dates: start: 20120710, end: 20120711
  10. TELMISARTAN [Suspect]
     Indication: HYPERTENSION
     Dosage: 80 MG, QD
     Route: 048
     Dates: end: 20120716
  11. CELIPROLOL HYDROCHLORIDE [Suspect]
     Indication: HYPERTENSION
     Dosage: 200 MG, QD
     Route: 048
     Dates: end: 20120716
  12. METFORMIN HYDROCHLORIDE [Concomitant]
     Dosage: UNK

REACTIONS (4)
  - HYPERKALAEMIA [None]
  - LACTIC ACIDOSIS [None]
  - TORSADE DE POINTES [None]
  - CARDIAC ARREST [None]
